FAERS Safety Report 15592983 (Version 2)
Quarter: 2018Q4

REPORT INFORMATION
  Report Type: Spontaneous
  Country: FR (occurrence: FR)
  Receive Date: 20181106
  Receipt Date: 20181214
  Transmission Date: 20190205
  Serious: Yes (Other)
  Sender: FDA-Public Use
  Company Number: FR-SHIRE-FR201841723

PATIENT

DRUGS (2)
  1. KIOVIG [Concomitant]
     Active Substance: HUMAN IMMUNOGLOBULIN G
     Indication: PRODUCT USED FOR UNKNOWN INDICATION
  2. HYQVIA [Suspect]
     Active Substance: HUMAN IMMUNOGLOBULIN G\HYALURONIDASE RECOMBINANT HUMAN
     Indication: OFF LABEL USE
     Dosage: 3 G, UNK
     Route: 058
     Dates: start: 20181022

REACTIONS (7)
  - Haemorrhage [Unknown]
  - Abdominal pain [Unknown]
  - Product administration error [Unknown]
  - Abdominal pain lower [Unknown]
  - Injection site induration [Unknown]
  - Off label use [Unknown]
  - Injection site haematoma [Unknown]

NARRATIVE: CASE EVENT DATE: 20181022
